FAERS Safety Report 5826907-6 (Version None)
Quarter: 2008Q3

REPORT INFORMATION
  Report Type: 
  Country: None (occurrence: None)
  Receive Date: 20080730
  Receipt Date: 20080725
  Transmission Date: 20090109
  Serious: No
  Sender: FDA-Public Use
  Company Number: US-BAYER-200829119NA

PATIENT
  Age: 29 Year
  Sex: Female

DRUGS (1)
  1. MIRENA [Suspect]
     Indication: CONTRACEPTION
     Route: 015
     Dates: start: 20031101

REACTIONS (7)
  - ABDOMINAL DISTENSION [None]
  - AMENORRHOEA [None]
  - BREAST TENDERNESS [None]
  - FATIGUE [None]
  - GENITAL HAEMORRHAGE [None]
  - IUCD COMPLICATION [None]
  - MOOD SWINGS [None]
